FAERS Safety Report 7925168-1 (Version None)
Quarter: 2011Q4

REPORT INFORMATION
  Report Type: 
  Country: None (occurrence: None)
  Receive Date: 20111118
  Receipt Date: 20110401
  Transmission Date: 20120403
  Serious: Yes (Hospitalization)
  Sender: FDA-Public Use
  Company Number: US-AMGEN-USASP2011017665

PATIENT
  Age: 20 Year
  Sex: Female

DRUGS (2)
  1. ENBREL [Suspect]
     Indication: PSORIASIS
     Dates: start: 20061101, end: 20070101
  2. ENBREL [Suspect]
     Indication: PSORIATIC ARTHROPATHY

REACTIONS (6)
  - PSORIATIC ARTHROPATHY [None]
  - LABORATORY TEST ABNORMAL [None]
  - DRUG INEFFECTIVE [None]
  - PSORIASIS [None]
  - PNEUMONIA [None]
  - GAIT DISTURBANCE [None]
